FAERS Safety Report 4677546-4 (Version None)
Quarter: 2005Q2

REPORT INFORMATION
  Report Type: 
  Country: None (occurrence: None)
  Receive Date: 20050526
  Receipt Date: 20050526
  Transmission Date: 20051028
  Serious: Yes (Life-Threatening, Hospitalization, Disabling)
  Sender: FDA-Public Use
  Company Number: None

PATIENT
  Sex: Female
  Weight: 102 kg

DRUGS (4)
  1. ENBREL [Suspect]
     Indication: PSORIASIS
     Dosage: ENBREL  1 INJ PER WEEK   SUBCUTANEO
     Route: 058
     Dates: start: 20041201, end: 20050420
  2. ENBREL [Suspect]
     Indication: PSORIATIC ARTHROPATHY
     Dosage: ENBREL  1 INJ PER WEEK   SUBCUTANEO
     Route: 058
     Dates: start: 20041201, end: 20050420
  3. CRESTOR [Suspect]
     Indication: HYPERCHOLESTEROLAEMIA
     Dosage: CRESTOR     1 PER DAY    ORAL
     Route: 048
     Dates: start: 20050406, end: 20050420
  4. CRESTOR [Suspect]
     Indication: HYPERLIPIDAEMIA
     Dosage: CRESTOR     1 PER DAY    ORAL
     Route: 048
     Dates: start: 20050406, end: 20050420

REACTIONS (2)
  - HEAVY CHAIN DISEASE [None]
  - RENAL FAILURE ACUTE [None]
